FAERS Safety Report 12721996 (Version 1)
Quarter: 2016Q3

REPORT INFORMATION
  Report Type: Spontaneous
  Country: US (occurrence: US)
  Receive Date: 20160907
  Receipt Date: 20160907
  Transmission Date: 20161109
  Serious: No
  Sender: FDA-Public Use
  Company Number: US-GLAXOSMITHKLINE-US2016128682

PATIENT
  Age: 56 Year
  Sex: Male

DRUGS (7)
  1. KLONOPIN [Concomitant]
     Active Substance: CLONAZEPAM
  2. LISINOPRIL. [Concomitant]
     Active Substance: LISINOPRIL
  3. HYDROCODONE [Concomitant]
     Active Substance: HYDROCODONE
  4. ATENOLOL. [Concomitant]
     Active Substance: ATENOLOL
  5. NEURONTIN [Concomitant]
     Active Substance: GABAPENTIN
  6. VENTOLIN HFA [Suspect]
     Active Substance: ALBUTEROL SULFATE
     Indication: PULMONARY CONGESTION
     Dosage: 2 PUFF(S), PRN
     Route: 055
     Dates: start: 201604
  7. VENTOLIN HFA [Suspect]
     Active Substance: ALBUTEROL SULFATE
     Indication: DYSPNOEA

REACTIONS (2)
  - Off label use [Not Recovered/Not Resolved]
  - Amphetamines positive [Not Recovered/Not Resolved]

NARRATIVE: CASE EVENT DATE: 201608
